FAERS Safety Report 7966432-X (Version None)
Quarter: 2011Q4

REPORT INFORMATION
  Report Type: 
  Country: None (occurrence: None)
  Receive Date: 20111208
  Receipt Date: 20111128
  Transmission Date: 20120403
  Serious: Yes (Hospitalization)
  Sender: FDA-Public Use
  Company Number: FR-ROCHE-1019194

PATIENT
  Sex: Female
  Weight: 63 kg

DRUGS (3)
  1. HERCEPTIN [Suspect]
     Indication: BREAST CANCER
     Dosage: DATE OF LAST DOSE PRIOR TO SAE: 07/NOV/2011
     Route: 042
     Dates: start: 20110926, end: 20111128
  2. AVASTIN [Suspect]
     Indication: BREAST CANCER
     Dosage: DATE OF LAST DOSE PRIOR TO SAE: 07/NOV/2011
     Route: 042
     Dates: start: 20111107, end: 20111128
  3. DOCETAXEL [Suspect]
     Indication: BREAST CANCER
     Dosage: DATE OF LAST DOSE PRIOR TO SAE: 07/NOV/2011
     Route: 042
     Dates: start: 20110926, end: 20111128

REACTIONS (1)
  - ENCEPHALOPATHY [None]
